FAERS Safety Report 4319964-X (Version None)
Quarter: 2004Q1

REPORT INFORMATION
  Report Type: 
  Country: None (occurrence: None)
  Receive Date: 20040315
  Receipt Date: 20040108
  Transmission Date: 20041129
  Serious: No
  Sender: FDA-Public Use
  Company Number: 2004193293US

PATIENT
  Sex: Female

DRUGS (1)
  1. BEXTRA [Suspect]
     Dosage: 10 MG, ORAL
     Route: 048

REACTIONS (2)
  - ABDOMINAL DISCOMFORT [None]
  - ILL-DEFINED DISORDER [None]
